FAERS Safety Report 7130834-4 (Version None)
Quarter: 2010Q4

REPORT INFORMATION
  Report Type: 
  Country: None (occurrence: None)
  Receive Date: 20101201
  Receipt Date: 20091228
  Transmission Date: 20110411
  Serious: Yes (Death)
  Sender: FDA-Public Use
  Company Number: US-ROCHE-744668

PATIENT

DRUGS (6)
  1. CEFTRIAXONE SODIUM [Suspect]
     Indication: PNEUMONIA
     Route: 065
  2. OSELTAMIVIR [Concomitant]
     Indication: H1N1 INFLUENZA
     Route: 065
  3. ZANAMIVIR [Concomitant]
     Indication: H1N1 INFLUENZA
  4. AMANTADINE HCL [Concomitant]
     Indication: H1N1 INFLUENZA
  5. RIMANTADINE HYDROCHLORIDE [Concomitant]
     Indication: H1N1 INFLUENZA
  6. CORTICOSTEROIDS [Concomitant]

REACTIONS (2)
  - ACUTE RESPIRATORY DISTRESS SYNDROME [None]
  - DRUG INEFFECTIVE [None]
